FAERS Safety Report 5202095-4 (Version None)
Quarter: 2007Q1

REPORT INFORMATION
  Report Type: 
  Country: None (occurrence: None)
  Receive Date: 20070103
  Receipt Date: 20061227
  Transmission Date: 20070707
  Serious: Yes (Death, Hospitalization)
  Sender: FDA-Public Use
  Company Number: HQWYE328305SEP06

PATIENT
  Age: 28 Year
  Sex: Male

DRUGS (14)
  1. MYLOTARG [Suspect]
     Indication: ACUTE MYELOID LEUKAEMIA RECURRENT
     Dosage: 6 MG/M^2  1 X PER 1 DAY, INTRAVENOUS DRIP
     Route: 041
     Dates: start: 20060609, end: 20060609
  2. MYLOTARG [Suspect]
     Indication: ACUTE MYELOID LEUKAEMIA RECURRENT
     Dosage: 6 MG/M^2  1 X PER 1 DAY, INTRAVENOUS DRIP
     Route: 041
     Dates: start: 20060623, end: 20060623
  3. CYTARABINE [Suspect]
     Indication: ACUTE MYELOID LEUKAEMIA RECURRENT
     Route: 042
     Dates: start: 20060610, end: 20060616
  4. CYTARABINE [Suspect]
     Indication: ACUTE MYELOID LEUKAEMIA RECURRENT
     Route: 042
     Dates: start: 20060814, end: 20060818
  5. IDARUBICIN HCL [Suspect]
     Indication: ACUTE MYELOID LEUKAEMIA RECURRENT
     Route: 042
     Dates: start: 20060610, end: 20060616
  6. NOVANTRONE [Suspect]
     Indication: ACUTE MYELOID LEUKAEMIA RECURRENT
     Route: 042
     Dates: start: 20060814, end: 20060816
  7. KYTRIL [Concomitant]
  8. SAXIZON (HYDROCORTISONE SODIUM SUCCINATE) [Concomitant]
  9. FRAGMIN [Concomitant]
  10. ITRACONAZOLE [Concomitant]
  11. FAMOTIDINE [Concomitant]
  12. SELBEX (TEPRENONE) [Concomitant]
  13. SULFAMETHOXAZOLE + TRIMETHOPRIM [Concomitant]
  14. POLYMYXIN B SULFATE (POLYMYXIN B SULFATE) [Concomitant]

REACTIONS (9)
  - ANAEMIA [None]
  - CELLULITIS [None]
  - DIARRHOEA [None]
  - EPISTAXIS [None]
  - HEPATIC FUNCTION ABNORMAL [None]
  - NEUTROPHIL COUNT DECREASED [None]
  - PLATELET COUNT DECREASED [None]
  - SEPSIS [None]
  - STOMATITIS [None]
